FAERS Safety Report 4791252-7 (Version None)
Quarter: 2005Q4

REPORT INFORMATION
  Report Type: 
  Country: None (occurrence: None)
  Receive Date: 20051007
  Receipt Date: 20050920
  Transmission Date: 20060501
  Serious: Yes (Hospitalization)
  Sender: FDA-Public Use
  Company Number: PHBS2005BR13910

PATIENT
  Age: 9 Year
  Sex: Male
  Weight: 33 kg

DRUGS (1)
  1. TEGRETOL [Suspect]
     Indication: PSYCHOMOTOR HYPERACTIVITY
     Dosage: 5 ML, QD (2%)
     Route: 048
     Dates: start: 20020501

REACTIONS (10)
  - ABDOMINAL PAIN [None]
  - ANOREXIA [None]
  - HYPERSENSITIVITY [None]
  - INFECTION [None]
  - NAUSEA [None]
  - PYREXIA [None]
  - RASH [None]
  - SINUSITIS [None]
  - TONSILLITIS [None]
  - VOMITING [None]
